FAERS Safety Report 9070202 (Version 1)
Quarter: 2013Q1

REPORT INFORMATION
  Report Type: Spontaneous
  Country: PR (occurrence: PR)
  Receive Date: 20130129
  Receipt Date: 20130129
  Transmission Date: 20140127
  Serious: Yes (Hospitalization)
  Sender: FDA-Public Use
  Company Number: PR-ABBOTT-11P-131-0875778-00

PATIENT
  Sex: Male

DRUGS (2)
  1. HUMIRA 40 MG/0.8 ML PEN [Suspect]
     Indication: MATERNAL EXPOSURE TIMING UNSPECIFIED
     Route: 064
  2. HUMIRA 40 MG/0.8 ML PEN [Suspect]
     Route: 063

REACTIONS (3)
  - Pneumonia [Recovered/Resolved]
  - Foetal exposure during pregnancy [Unknown]
  - Exposure during breast feeding [Unknown]
